FAERS Safety Report 21780420 (Version 3)
Quarter: 2023Q1

REPORT INFORMATION
  Report Type: Report from Study
  Country: US (occurrence: None)
  Receive Date: 20221227
  Receipt Date: 20230306
  Transmission Date: 20230418
  Serious: Yes (Death)
  Sender: FDA-Public Use
  Company Number: US-Merck Healthcare KGaA-9374779

PATIENT
  Sex: Female

DRUGS (1)
  1. REBIF [Suspect]
     Active Substance: INTERFERON BETA-1A
     Indication: Relapsing-remitting multiple sclerosis
     Dosage: /0.5 ML
     Route: 058
     Dates: start: 20081118

REACTIONS (1)
  - Pulmonary oedema [Fatal]
